FAERS Safety Report 7263640-0 (Version None)
Quarter: 2011Q1

REPORT INFORMATION
  Report Type: 
  Country: None (occurrence: None)
  Receive Date: 20110130
  Receipt Date: 20101202
  Transmission Date: 20110831
  Serious: No
  Sender: FDA-Public Use
  Company Number: US-ABBOTT-10P-163-0689672-00

PATIENT
  Sex: Female
  Weight: 113.5 kg

DRUGS (3)
  1. PREMARIN [Concomitant]
     Indication: PRODUCT USED FOR UNKNOWN INDICATION
  2. HUMIRA [Suspect]
     Indication: PSORIASIS
     Dates: start: 20080101, end: 20101001
  3. HUMIRA [Suspect]
     Dates: start: 20101201

REACTIONS (2)
  - HEADACHE [None]
  - ABDOMINAL PAIN UPPER [None]
